FAERS Safety Report 6623929-2 (Version None)
Quarter: 2010Q1

REPORT INFORMATION
  Report Type: 
  Country: None (occurrence: None)
  Receive Date: 20100304
  Receipt Date: 20100219
  Transmission Date: 20100710
  Serious: Yes (Hospitalization)
  Sender: FDA-Public Use
  Company Number: 1000012172

PATIENT
  Age: 68 Year
  Sex: Female
  Weight: 79.5 kg

DRUGS (7)
  1. CITALOPRAM HYDROBROMIDE [Suspect]
     Dosage: 20 MG, ORAL
     Route: 048
     Dates: start: 20080401
  2. HALDOL [Suspect]
     Dosage: 2 MG, ORAL
     Route: 048
     Dates: start: 20090708, end: 20090714
  3. SEROQUEL [Suspect]
     Dosage: 125 MG, ORAL; 175 MG, ORAL
     Route: 048
     Dates: end: 20090714
  4. SEROQUEL [Suspect]
     Dosage: 125 MG, ORAL; 175 MG, ORAL
     Route: 048
     Dates: start: 20090715
  5. LEVOTHYROXINE SODIUM [Concomitant]
  6. AXURA [Concomitant]
  7. XALATAN [Concomitant]

REACTIONS (5)
  - AGGRESSION [None]
  - DRUG INTERACTION [None]
  - GAIT DISTURBANCE [None]
  - PLEUROTHOTONUS [None]
  - RESTLESSNESS [None]
